FAERS Safety Report 24004502 (Version 1)
Quarter: 2024Q2

REPORT INFORMATION
  Report Type: Spontaneous
  Country: JP (occurrence: JP)
  Receive Date: 20240624
  Receipt Date: 20240624
  Transmission Date: 20240716
  Serious: Yes (Other)
  Sender: FDA-Public Use
  Company Number: JP-BIOCODEX2-2024000885

PATIENT
  Age: 14 Year
  Sex: Female

DRUGS (1)
  1. DIACOMIT [Suspect]
     Active Substance: STIRIPENTOL
     Indication: Severe myoclonic epilepsy of infancy
     Route: 048

REACTIONS (3)
  - Somnolence [Recovering/Resolving]
  - Decreased appetite [Recovered/Resolved]
  - Tonic convulsion [Recovered/Resolved]
